FAERS Safety Report 7349401-2 (Version None)
Quarter: 2011Q1

REPORT INFORMATION
  Report Type: 
  Country: None (occurrence: None)
  Receive Date: 20110314
  Receipt Date: 20100827
  Transmission Date: 20110831
  Serious: No
  Sender: FDA-Public Use
  Company Number: US-ABBOTT-10P-163-0668012-00

PATIENT
  Sex: Female
  Weight: 89.438 kg

DRUGS (7)
  1. DEPAKOTE [Suspect]
     Indication: MIGRAINE
     Dates: start: 20100315, end: 20100827
  2. TOPROL-XL [Concomitant]
     Indication: MYOCARDIAL INFARCTION
     Dates: start: 20091101
  3. FISH OIL [Concomitant]
     Indication: MEDICAL DIET
  4. MULTI-VITAMIN [Concomitant]
     Indication: VITAMIN SUPPLEMENTATION
  5. CRESTOR [Concomitant]
     Indication: PRODUCT USED FOR UNKNOWN INDICATION
  6. CARDIZEM [Concomitant]
     Indication: ARTERIOSPASM CORONARY
     Dates: start: 20091101
  7. ZANTAC [Concomitant]
     Indication: GASTROOESOPHAGEAL REFLUX DISEASE

REACTIONS (3)
  - TOOTHACHE [None]
  - NAUSEA [None]
  - ALOPECIA [None]
